FAERS Safety Report 6258223-5 (Version None)
Quarter: 2009Q3

REPORT INFORMATION
  Report Type: 
  Country: None (occurrence: None)
  Receive Date: 20090707
  Receipt Date: 20090701
  Transmission Date: 20100115
  Serious: Yes (Death, Life-Threatening, Hospitalization, Disabling)
  Sender: FDA-Public Use
  Company Number: JP-BRISTOL-MYERS SQUIBB COMPANY-14581151

PATIENT
  Age: 77 Year
  Sex: Female

DRUGS (15)
  1. SPRYCEL [Suspect]
     Indication: ACUTE LYMPHOCYTIC LEUKAEMIA
     Dosage: STARTED ON 23MAR09
     Route: 048
     Dates: start: 20090326, end: 20090331
  2. NEOPHYLLIN [Concomitant]
     Dosage: FORM: INJECTION.
     Route: 042
  3. GASTER D [Concomitant]
     Route: 048
     Dates: start: 20060201, end: 20090331
  4. LASIX [Concomitant]
     Route: 048
     Dates: start: 20060831, end: 20090331
  5. ALDACTONE [Concomitant]
     Route: 048
     Dates: start: 20060831, end: 20090331
  6. GLYBURIDE [Concomitant]
     Route: 048
     Dates: start: 20070602, end: 20090331
  7. PAXIL [Concomitant]
     Route: 048
     Dates: start: 20070104, end: 20090331
  8. GASMOTIN [Concomitant]
     Route: 048
     Dates: start: 20070517, end: 20090331
  9. ASTOMIN [Concomitant]
     Route: 048
     Dates: start: 20080807, end: 20090331
  10. BASEN [Concomitant]
     Dosage: BASEN OD
     Route: 048
     Dates: start: 20061109, end: 20090331
  11. ITRIZOLE [Concomitant]
     Route: 048
     Dates: start: 20060213, end: 20090331
  12. BENZALIN [Concomitant]
     Route: 048
     Dates: start: 20060226, end: 20090331
  13. ZADITEN [Concomitant]
     Route: 048
     Dates: start: 20090326, end: 20090331
  14. LOXONIN [Concomitant]
     Route: 048
     Dates: start: 20090326, end: 20090331
  15. SULPERAZON [Concomitant]
     Route: 042
     Dates: start: 20090401, end: 20090404

REACTIONS (7)
  - ANAEMIA [None]
  - GENERALISED OEDEMA [None]
  - LIVER DISORDER [None]
  - NEUTROPHIL COUNT DECREASED [None]
  - PLATELET COUNT DECREASED [None]
  - PLEURAL EFFUSION [None]
  - WHITE BLOOD CELL COUNT DECREASED [None]
